FAERS Safety Report 5663528-2 (Version None)
Quarter: 2008Q1

REPORT INFORMATION
  Report Type: 
  Country: None (occurrence: None)
  Receive Date: 20080310
  Receipt Date: 20080226
  Transmission Date: 20080703
  Serious: Yes (Other)
  Sender: FDA-Public Use
  Company Number: MK-6032683

PATIENT
  Age: 35 Year
  Sex: Male

DRUGS (3)
  1. AZATHIOPRINE [Suspect]
     Indication: RENAL TRANSPLANT
     Dosage: 100 MG; DAILY, 100 MG; DAILY
  2. CYCLOSPORINE [Suspect]
     Indication: RENAL TRANSPLANT
     Dosage: 125 MG; TWICE A DAY, 125 MG; TWICE A DAY
  3. PREDNISOLONE [Suspect]
     Indication: RENAL TRANSPLANT
     Dosage: 10 MG; 1_NULL_NULL, 10 MG; 1_NULL_NULL

REACTIONS (5)
  - EPSTEIN-BARR VIRUS INFECTION [None]
  - LIGHT CHAIN ANALYSIS ABNORMAL [None]
  - LYMPHOPROLIFERATIVE DISORDER [None]
  - SKIN LESION [None]
  - SKIN NODULE [None]
